FAERS Safety Report 16075127 (Version 1)
Quarter: 2019Q1

REPORT INFORMATION
  Report Type: Spontaneous
  Country: US (occurrence: US)
  Receive Date: 20190315
  Receipt Date: 20190315
  Transmission Date: 20190418
  Serious: No
  Sender: FDA-Public Use
  Company Number: US-ASTRAZENECA-2019SE26204

PATIENT
  Sex: Male

DRUGS (1)
  1. BYDUREON [Suspect]
     Active Substance: EXENATIDE
     Dosage: 2.0MG UNKNOWN
     Route: 058

REACTIONS (6)
  - Device malfunction [Unknown]
  - Product dose omission [Not Recovered/Not Resolved]
  - Product use issue [Unknown]
  - Fear [Unknown]
  - Injection site extravasation [Unknown]
  - Wrong technique in product usage process [Unknown]
